FAERS Safety Report 10076453 (Version 6)
Quarter: 2014Q4

REPORT INFORMATION
  Report Type: Report from Study
  Country: US (occurrence: US)
  Receive Date: 20140414
  Receipt Date: 20141112
  Transmission Date: 20150528
  Serious: Yes (Death, Other)
  Sender: FDA-Public Use
  Company Number: US-SA-2013SA135278

PATIENT
  Age: 64 Year
  Sex: Female

DRUGS (10)
  1. CORTICOSTEROIDS [Concomitant]
     Active Substance: CORTICOSTEROID NOS
  2. LISINOPRIL. [Concomitant]
     Active Substance: LISINOPRIL
  3. ASA [Concomitant]
     Active Substance: ASPIRIN
  4. AGGRENOX [Concomitant]
     Active Substance: ASPIRIN\DIPYRIDAMOLE
  5. PRAVASTATIN [Concomitant]
     Active Substance: PRAVASTATIN\PRAVASTATIN SODIUM
  6. AUBAGIO [Suspect]
     Active Substance: TERIFLUNOMIDE
     Indication: MULTIPLE SCLEROSIS
     Route: 048
     Dates: start: 20130722
  7. AMLODIPINE [Concomitant]
     Active Substance: AMLODIPINE BESYLATE
  8. FOLIC ACID. [Concomitant]
     Active Substance: FOLIC ACID
  9. LEVOTHYROXINE [Concomitant]
     Active Substance: LEVOTHYROXINE
  10. VITAMIN D [Concomitant]
     Active Substance: CHOLECALCIFEROL

REACTIONS (6)
  - Death [Fatal]
  - Lung cancer metastatic [Unknown]
  - Multiple fractures [Unknown]
  - Mass [Unknown]
  - Asthma [Unknown]
  - Fall [Unknown]

NARRATIVE: CASE EVENT DATE: 201401
